FAERS Safety Report 5894725-9 (Version None)
Quarter: 2008Q3

REPORT INFORMATION
  Report Type: 
  Country: None (occurrence: None)
  Receive Date: 20080924
  Receipt Date: 20080519
  Transmission Date: 20090109
  Serious: No
  Sender: FDA-Public Use
  Company Number: US-ASTRAZENECA-2008UW10635

PATIENT
  Age: 48 Year
  Sex: Male
  Weight: 66.4 kg

DRUGS (6)
  1. SEROQUEL [Suspect]
     Indication: SCHIZOPHRENIA
     Route: 048
     Dates: start: 20030101
  2. SEROQUEL [Suspect]
     Indication: BIPOLAR DISORDER
     Route: 048
     Dates: start: 20030101
  3. SEROQUEL [Suspect]
     Indication: DEPRESSION
     Route: 048
     Dates: start: 20030101
  4. RISPERDAL [Concomitant]
  5. TRAZODONE HCL [Concomitant]
  6. CYMBALTA [Concomitant]

REACTIONS (2)
  - DIABETES MELLITUS [None]
  - ILL-DEFINED DISORDER [None]
